FAERS Safety Report 5368144-8 (Version None)
Quarter: 2007Q2

REPORT INFORMATION
  Report Type: 
  Country: None (occurrence: None)
  Receive Date: 20070625
  Receipt Date: 20070612
  Transmission Date: 20071010
  Serious: Yes (Other)
  Sender: FDA-Public Use
  Company Number: JP-JNJFOC-20070501632

PATIENT
  Sex: Female
  Weight: 73 kg

DRUGS (17)
  1. REMICADE [Suspect]
     Route: 042
  2. REMICADE [Suspect]
     Route: 042
  3. REMICADE [Suspect]
     Route: 042
  4. REMICADE [Suspect]
     Dosage: 7 INFUSIONS ON UNKNOWN DATES
     Route: 042
  5. REMICADE [Suspect]
     Route: 042
  6. REMICADE [Suspect]
     Dosage: 7 INFUSIONS ON UNKNOWN DATES
     Route: 042
  7. REMICADE [Suspect]
     Dosage: 7 INFUSIONS ON UNKNOWN DATES
     Route: 042
  8. REMICADE [Suspect]
     Indication: RHEUMATOID ARTHRITIS
     Dosage: 7 INFUSIONS ON UNKNOWN DATES
     Route: 042
  9. RHEUMATREX [Suspect]
     Route: 048
  10. RHEUMATREX [Suspect]
     Route: 048
  11. RHEUMATREX [Suspect]
     Indication: RHEUMATOID ARTHRITIS
     Route: 048
  12. PREDONINE [Concomitant]
     Indication: RHEUMATOID ARTHRITIS
     Route: 048
  13. RINDERON-VG [Concomitant]
     Indication: RHEUMATOID ARTHRITIS
  14. VOLTAREN [Concomitant]
     Indication: RHEUMATOID ARTHRITIS
     Route: 048
  15. FOLIAMIN [Concomitant]
     Route: 048
  16. ALFAROL [Concomitant]
     Dosage: 0.5RG
     Route: 048
  17. PROMAC [Concomitant]
     Route: 048

REACTIONS (6)
  - DNA ANTIBODY [None]
  - DRUG INEFFECTIVE [None]
  - HYPOXIA [None]
  - INFUSION RELATED REACTION [None]
  - SYSTEMIC LUPUS ERYTHEMATOSUS [None]
  - URTICARIA [None]
